FAERS Safety Report 8030331-8 (Version None)
Quarter: 2012Q1

REPORT INFORMATION
  Report Type: 
  Country: None (occurrence: None)
  Receive Date: 20120105
  Receipt Date: 20111220
  Transmission Date: 20120608
  Serious: Yes (Life-Threatening, Other)
  Sender: FDA-Public Use
  Company Number: 2011BN000110

PATIENT
  Age: 6 Year
  Sex: Male

DRUGS (9)
  1. MELPHALAN HYDROCHLORIDE [Suspect]
     Indication: RHABDOMYOSARCOMA
  2. CYCLOPHOSPHAMIDE [Suspect]
     Indication: RHABDOMYOSARCOMA
  3. THIOTEPA [Suspect]
     Indication: RHABDOMYOSARCOMA
  4. CISPLATIN [Suspect]
     Indication: RHABDOMYOSARCOMA
  5. IFOSFAMIDE [Suspect]
     Indication: RHABDOMYOSARCOMA
  6. DACTINOMYCIN [Suspect]
     Indication: RHABDOMYOSARCOMA
  7. VINCRISTINE [Suspect]
     Indication: RHABDOMYOSARCOMA
  8. ETOPOSIDE [Suspect]
     Indication: RHABDOMYOSARCOMA
  9. PIRARUBICIN (PIRARUBIXIN) [Suspect]
     Indication: RHABDOMYOSARCOMA

REACTIONS (6)
  - METASTASES TO LYMPH NODES [None]
  - NERVOUS SYSTEM DISORDER [None]
  - NEOPLASM RECURRENCE [None]
  - ATAXIA [None]
  - RHABDOMYOSARCOMA [None]
  - METASTASES TO CENTRAL NERVOUS SYSTEM [None]
